FAERS Safety Report 18049323 (Version 1)
Quarter: 2020Q3

REPORT INFORMATION
  Report Type: Spontaneous
  Country: US (occurrence: US)
  Receive Date: 20200721
  Receipt Date: 20200721
  Transmission Date: 20201103
  Serious: No
  Sender: FDA-Public Use
  Company Number: None

PATIENT
  Age: 81 Year
  Sex: Female
  Weight: 64 kg

DRUGS (23)
  1. ALBUTEROL. [Concomitant]
     Active Substance: ALBUTEROL
  2. CEPACOL SORE THROAT NOS [Concomitant]
     Active Substance: BENZOCAINE\MENTHOL OR DYCLONINE HYDROCHLORIDE\GLYCERIN
  3. KEPPRA [Concomitant]
     Active Substance: LEVETIRACETAM
  4. LANTUS [Concomitant]
     Active Substance: INSULIN GLARGINE
  5. GLUCAGON. [Concomitant]
     Active Substance: GLUCAGON
  6. TEMOZOLOMIDE. [Suspect]
     Active Substance: TEMOZOLOMIDE
     Indication: BRAIN NEOPLASM MALIGNANT
     Route: 048
     Dates: start: 20200622, end: 20200721
  7. ENALAPRIL [Concomitant]
     Active Substance: ENALAPRIL
  8. VALIUM [Concomitant]
     Active Substance: DIAZEPAM
  9. NALOXONE [Concomitant]
     Active Substance: NALOXONE
  10. TYLENOL [Concomitant]
     Active Substance: ACETAMINOPHEN
  11. DEXAMETHASONE. [Concomitant]
     Active Substance: DEXAMETHASONE
  12. MILK OF MAGNESIA [Concomitant]
     Active Substance: MAGNESIUM HYDROXIDE
  13. XANAX [Concomitant]
     Active Substance: ALPRAZOLAM
  14. TEMOZOLOMIDE. [Suspect]
     Active Substance: TEMOZOLOMIDE
     Indication: BRAIN NEOPLASM MALIGNANT
     Route: 048
     Dates: start: 20200623, end: 20200721
  15. DOCUSATE [Concomitant]
     Active Substance: DOCUSATE
  16. LOVASTATIN. [Concomitant]
     Active Substance: LOVASTATIN
  17. DULCOLAX NOS [Concomitant]
     Active Substance: BISACODYL OR DOCUSATE SODIUM
  18. NORCO [Concomitant]
     Active Substance: ACETAMINOPHEN\HYDROCODONE BITARTRATE
  19. ZINC OXIDE. [Concomitant]
     Active Substance: ZINC OXIDE
  20. ZOFRAN [Concomitant]
     Active Substance: ONDANSETRON HYDROCHLORIDE
  21. HCTZ [Concomitant]
     Active Substance: HYDROCHLOROTHIAZIDE
  22. PEPCID [Concomitant]
     Active Substance: FAMOTIDINE
  23. INSULIN LISPRO [Concomitant]
     Active Substance: INSULIN LISPRO

REACTIONS (1)
  - Hospice care [None]

NARRATIVE: CASE EVENT DATE: 20200721
